FAERS Safety Report 4353414-2 (Version None)
Quarter: 2004Q2

REPORT INFORMATION
  Report Type: 
  Country: None (occurrence: None)
  Receive Date: 20040503
  Receipt Date: 20040503
  Transmission Date: 20050107
  Serious: Yes (Death, Life-Threatening)
  Sender: FDA-Public Use
  Company Number: None

PATIENT
  Age: 7 Year
  Sex: Female
  Weight: 36.7414 kg

DRUGS (1)
  1. TEMODAR [Suspect]
     Indication: BRAIN STEM GLIOMA

REACTIONS (15)
  - ABNORMAL CHEST SOUND [None]
  - ASTHENIA [None]
  - BODY TEMPERATURE INCREASED [None]
  - BRADYCARDIA [None]
  - BRAIN STEM HAEMORRHAGE [None]
  - CARDIO-RESPIRATORY ARREST [None]
  - CONVULSION [None]
  - DYSPNOEA [None]
  - LUNG CONSOLIDATION [None]
  - PARALYSIS [None]
  - PULSE PRESSURE DECREASED [None]
  - RESPIRATORY FAILURE [None]
  - SWELLING [None]
  - SWELLING FACE [None]
  - WEIGHT INCREASED [None]
